FAERS Safety Report 14803336 (Version 1)
Quarter: 2018Q2

REPORT INFORMATION
  Report Type: Spontaneous
  Country: US (occurrence: US)
  Receive Date: 20180425
  Receipt Date: 20180425
  Transmission Date: 20180711
  Serious: Yes (Other)
  Sender: FDA-Public Use
  Company Number: US-ALK-ABELLO A/S-2018AA001219

PATIENT

DRUGS (2)
  1. TAE BULK 1325 (EPICOCCUM NIGRUM) [Suspect]
     Active Substance: EPICOCCUM NIGRUM
     Indication: PRODUCT USED FOR UNKNOWN INDICATION
     Dosage: UNK
     Dates: start: 20180412
  2. TAE BULK 1313 (ASPERGILLUS NIGER VAR. NIGER\CLADOSPORIUM SPHAEROSPERUM\COCHLIOBOLUS SATIVUS\PENICILLIUM NOTATUM) [Suspect]
     Active Substance: ALLERGENIC EXTRACTS
     Indication: PRODUCT USED FOR UNKNOWN INDICATION
     Dosage: UNK
     Dates: start: 20180412

REACTIONS (1)
  - Hypersensitivity [Recovered/Resolved]

NARRATIVE: CASE EVENT DATE: 20180412
